FAERS Safety Report 15687455 (Version 3)
Quarter: 2019Q1

REPORT INFORMATION
  Report Type: Report from Study
  Country: None (occurrence: CH)
  Receive Date: 20181205
  Receipt Date: 20190125
  Transmission Date: 20190417
  Serious: Yes (Death, Other)
  Sender: FDA-Public Use
  Company Number: CH-ABBVIE-18S-151-2497615-00

PATIENT
  Age: 80 Year
  Sex: Male

DRUGS (5)
  1. DUODOPA [Suspect]
     Active Substance: CARBIDOPA\LEVODOPA
     Indication: PARKINSON^S DISEASE
     Route: 050
     Dates: start: 20140708, end: 20141202
  2. DUODOPA [Suspect]
     Active Substance: CARBIDOPA\LEVODOPA
     Route: 050
  3. DUODOPA [Suspect]
     Active Substance: CARBIDOPA\LEVODOPA
     Dosage: MD 9ML; CR-DAY 4.1ML/H; ED 2.5ML 16H THERAPY
     Route: 050
     Dates: start: 20141202, end: 20170626
  4. DUODOPA [Suspect]
     Active Substance: CARBIDOPA\LEVODOPA
     Route: 050
  5. DUODOPA [Suspect]
     Active Substance: CARBIDOPA\LEVODOPA
     Dosage: MD 9ML; CR DAY 4.5ML/H; ED 2.8ML 16H THERAPY
     Route: 050
     Dates: start: 20170626

REACTIONS (10)
  - Asthenia [Fatal]
  - Dysphagia [Unknown]
  - Decreased appetite [Unknown]
  - Pneumonia [Fatal]
  - Dyskinesia [Unknown]
  - Weight decreased [Not Recovered/Not Resolved]
  - Parkinson^s disease [Unknown]
  - Asthenia [Unknown]
  - Food refusal [Unknown]
  - Suicidal ideation [Unknown]

NARRATIVE: CASE EVENT DATE: 20181220
